FAERS Safety Report 10066713 (Version 1)
Quarter: 2014Q2

REPORT INFORMATION
  Report Type: Spontaneous
  Country: US (occurrence: US)
  Receive Date: 20140408
  Receipt Date: 20140408
  Transmission Date: 20141212
  Serious: No
  Sender: FDA-Public Use
  Company Number: US-B.I. PHARMACEUTICALS,INC./RIDGEFIELD-2014-BI-13897BP

PATIENT
  Age: 76 Year
  Sex: Male

DRUGS (4)
  1. PRADAXA [Suspect]
     Indication: ATRIAL FIBRILLATION
     Dosage: 300 MG
     Route: 048
     Dates: start: 20140120
  2. ZOCOR [Concomitant]
     Indication: BLOOD CHOLESTEROL INCREASED
     Dosage: 20 MG
     Route: 048
     Dates: start: 201401
  3. TOPROL [Concomitant]
     Indication: ATRIAL FIBRILLATION
     Dosage: 50 MG
     Route: 048
     Dates: start: 201401
  4. FLECAINIDE [Concomitant]
     Indication: ATRIAL FIBRILLATION
     Dosage: 100 MG
     Route: 048
     Dates: start: 201401

REACTIONS (1)
  - Dyspepsia [Not Recovered/Not Resolved]
